FAERS Safety Report 7900599-4 (Version None)
Quarter: 2011Q4

REPORT INFORMATION
  Report Type: 
  Country: None (occurrence: None)
  Receive Date: 20111108
  Receipt Date: 20111031
  Transmission Date: 20120403
  Serious: Yes (Hospitalization)
  Sender: FDA-Public Use
  Company Number: BR-US-EMD SERONO, INC.-7093182

PATIENT
  Sex: Female

DRUGS (9)
  1. GABAPENTIN [Concomitant]
  2. TILEX [Concomitant]
  3. AMITRIPTYLINE HCL [Concomitant]
  4. REBIF [Suspect]
     Indication: PRODUCT USED FOR UNKNOWN INDICATION
     Dates: start: 20110429
  5. TYLENOL-500 [Concomitant]
  6. AMLODIPINE [Concomitant]
  7. CLONAZEPAM [Concomitant]
  8. BLOCK [Concomitant]
  9. HYGROTON [Concomitant]

REACTIONS (3)
  - CEREBRAL CYST [None]
  - HYPERTENSION [None]
  - HEADACHE [None]
